FAERS Safety Report 4919902-2 (Version None)
Quarter: 2006Q1

REPORT INFORMATION
  Report Type: 
  Country: None (occurrence: None)
  Receive Date: 20060223
  Receipt Date: 20060214
  Transmission Date: 20060701
  Serious: Yes (Other)
  Sender: FDA-Public Use
  Company Number: GB-JNJFOC-20060203808

PATIENT
  Age: 50 Year
  Sex: Male

DRUGS (2)
  1. RISPERDAL [Suspect]
     Indication: SCHIZOPHRENIA
     Route: 065
  2. ORPHENADRINE [Concomitant]
     Indication: DRUG USE FOR UNKNOWN INDICATION

REACTIONS (6)
  - HYPOTENSION [None]
  - INSOMNIA [None]
  - MASTICATION DISORDER [None]
  - MOTOR DYSFUNCTION [None]
  - MUSCLE SPASMS [None]
  - PARAESTHESIA [None]
